FAERS Safety Report 4727843-9 (Version None)
Quarter: 2005Q3

REPORT INFORMATION
  Report Type: 
  Country: None (occurrence: None)
  Receive Date: 20050728
  Receipt Date: 20050428
  Transmission Date: 20060218
  Serious: Yes (Hospitalization)
  Sender: FDA-Public Use
  Company Number: US-MERCK-0505USA00238

PATIENT
  Age: 65 Year
  Sex: Male
  Weight: 76 kg

DRUGS (9)
  1. VIOXX [Suspect]
     Indication: ARTHRITIS
     Route: 048
     Dates: start: 19990622, end: 20040908
  2. VIOXX [Suspect]
     Route: 048
  3. VIOXX [Suspect]
     Indication: PAIN
     Route: 048
     Dates: start: 19990622, end: 20040908
  4. VIOXX [Suspect]
     Route: 048
  5. HYDROCODONE BITARTRATE [Concomitant]
     Indication: PAIN
     Route: 065
     Dates: start: 20030520, end: 20030528
  6. HYDROCODONE BITARTRATE [Concomitant]
     Indication: ARTHRITIS
     Route: 065
     Dates: start: 20030520, end: 20030528
  7. CYCLOBENZAPRINE HYDROCHLORIDE [Concomitant]
     Indication: BACK PAIN
     Route: 065
     Dates: start: 20040101
  8. CYCLOBENZAPRINE HYDROCHLORIDE [Concomitant]
     Indication: MUSCLE RELAXANT THERAPY
     Route: 065
     Dates: start: 20040101
  9. ARTHROTEC [Concomitant]
     Indication: ARTHRITIS
     Route: 065
     Dates: start: 20040101

REACTIONS (5)
  - BLOOD CHOLESTEROL INCREASED [None]
  - GASTROOESOPHAGEAL REFLUX DISEASE [None]
  - GLAUCOMA [None]
  - HYPERTENSION [None]
  - MYOCARDIAL INFARCTION [None]
